FAERS Safety Report 5012180-8 (Version None)
Quarter: 2006Q2

REPORT INFORMATION
  Report Type: 
  Country: None (occurrence: None)
  Receive Date: 20060524
  Receipt Date: 20060517
  Transmission Date: 20061013
  Serious: Yes (Hospitalization)
  Sender: FDA-Public Use
  Company Number: 2387

PATIENT
  Age: 67 Year
  Sex: Female

DRUGS (9)
  1. LITHIUM CARBONATE [Suspect]
     Indication: BIPOLAR DISORDER
     Dosage: 900 MG (450 MG, 2X DAY)
     Dates: start: 20051101, end: 20060407
  2. LITHIUM CARBONATE [Suspect]
     Indication: BIPOLAR DISORDER
     Dosage: 900 MG (450 MG, 2X DAY)
     Dates: start: 20060330, end: 20060407
  3. MACROBID [Concomitant]
  4. DEPAKOTE [Concomitant]
  5. OXYTROL (OXYBUTNYNIN) [Concomitant]
  6. PROTONIX [Concomitant]
  7. COMBIPATCH (KLIOGEST) [Concomitant]
  8. SINTHROID (LEVOTHYROXINE SODIUM) [Concomitant]
  9. SELEGILINE (SELEGILINE) [Concomitant]

REACTIONS (3)
  - THERAPEUTIC AGENT TOXICITY [None]
  - URINARY TRACT INFECTION [None]
  - WRONG TECHNIQUE IN DRUG USAGE PROCESS [None]
